FAERS Safety Report 10085598 (Version 2)
Quarter: 2014Q2

REPORT INFORMATION
  Report Type: Spontaneous
  Country: DE (occurrence: DE)
  Receive Date: 20140418
  Receipt Date: 20140418
  Transmission Date: 20141212
  Serious: Yes (Other)
  Sender: FDA-Public Use
  Company Number: DE-BRISTOL-MYERS SQUIBB COMPANY-20351458

PATIENT
  Age: 42 Year
  Sex: Female

DRUGS (1)
  1. BYDUREON 2MG PEN DISPOSABLE [Suspect]
     Indication: TYPE 2 DIABETES MELLITUS
     Dates: start: 20140211, end: 20140326

REACTIONS (2)
  - Injection site abscess [Unknown]
  - Abdominal wall abscess [Recovering/Resolving]
